FAERS Safety Report 19425927 (Version 1)
Quarter: 2021Q2

REPORT INFORMATION
  Report Type: Report from Study
  Country: US (occurrence: US)
  Receive Date: 20210616
  Receipt Date: 20210616
  Transmission Date: 20210717
  Serious: Yes (Death, Other)
  Sender: FDA-Public Use
  Company Number: US-BRISTOL-MYERS SQUIBB COMPANY-BMS-2021-058433

PATIENT
  Age: 79 Year
  Sex: Male
  Weight: 69.5 kg

DRUGS (3)
  1. NIVOLUMAB [Suspect]
     Active Substance: NIVOLUMAB
     Indication: SMALL CELL LUNG CANCER
     Dosage: 1 MILLIGRAM/KILOGRAM
     Route: 065
     Dates: start: 20210413, end: 20210504
  2. IPILIMUMAB [Suspect]
     Active Substance: IPILIMUMAB
     Indication: SMALL CELL LUNG CANCER
     Dosage: 3 MILLIGRAM/KILOGRAM
     Route: 065
     Dates: start: 20210413, end: 20210504
  3. LURBINECTEDIN [Suspect]
     Active Substance: LURBINECTEDIN
     Indication: SMALL CELL LUNG CANCER
     Dosage: 2.6 MILLIGRAM/SQ. METER
     Route: 065
     Dates: start: 20210413

REACTIONS (1)
  - Death [Fatal]

NARRATIVE: CASE EVENT DATE: 20210613
